FAERS Safety Report 24693208 (Version 4)
Quarter: 2025Q1

REPORT INFORMATION
  Report Type: Report from Study
  Country: JP (occurrence: JP)
  Receive Date: 20241203
  Receipt Date: 20250131
  Transmission Date: 20250408
  Serious: Yes (Other)
  Sender: ALEXION PHARMACEUTICALS
  Company Number: JP-ASTRAZENECA-240136362_032420_P_1

PATIENT
  Age: 73 Year
  Weight: 83 kg

DRUGS (3)
  1. TEZEPELUMAB [Suspect]
     Active Substance: TEZEPELUMAB
     Indication: Asthma
  2. Antiallergic agents [Concomitant]
     Indication: Asthma
     Route: 065
  3. UNSPECIFIED INGREDIENT [Concomitant]
     Active Substance: UNSPECIFIED INGREDIENT
     Route: 065

REACTIONS (13)
  - Blood pressure systolic increased [Recovered/Resolved]
  - Dizziness postural [Recovered/Resolved]
  - Cold sweat [Unknown]
  - Dizziness [Unknown]
  - Presyncope [Unknown]
  - Loss of consciousness [Unknown]
  - Asthma [Recovering/Resolving]
  - Palpitations [Recovered/Resolved]
  - Herpangina [Unknown]
  - Adenovirus infection [Unknown]
  - Infective exacerbation of asthma [Unknown]
  - Bronchitis [Unknown]
  - Pneumonia [Unknown]
